FAERS Safety Report 6460498-4 (Version None)
Quarter: 2009Q4

REPORT INFORMATION
  Report Type: 
  Country: None (occurrence: None)
  Receive Date: 20091130
  Receipt Date: 20091117
  Transmission Date: 20100525
  Serious: Yes (Hospitalization)
  Sender: FDA-Public Use
  Company Number: JP-JNJFOC-20091100001

PATIENT
  Age: 66 Year
  Sex: Male

DRUGS (3)
  1. CRAVIT [Suspect]
     Indication: CAMPYLOBACTER GASTROENTERITIS
     Route: 048
     Dates: start: 20091019, end: 20091021
  2. LEBENIN [Concomitant]
     Indication: ENTERITIS INFECTIOUS
     Route: 048
     Dates: start: 20091019, end: 20091021
  3. TAKEPRON [Concomitant]
     Indication: REFLUX OESOPHAGITIS
     Route: 048
     Dates: start: 20070301, end: 20091021

REACTIONS (1)
  - DUODENAL ULCER [None]
